FAERS Safety Report 10711579 (Version 2)
Quarter: 2015Q1

REPORT INFORMATION
  Report Type: Spontaneous
  Country: US (occurrence: US)
  Receive Date: 20150114
  Receipt Date: 20150116
  Transmission Date: 20150721
  Serious: Yes (Death)
  Sender: FDA-Public Use
  Company Number: US-PFIZER INC-2015008425

PATIENT
  Age: 51 Year
  Sex: Male

DRUGS (5)
  1. DIPHENHYDRAMINE [Suspect]
     Active Substance: DIPHENHYDRAMINE
     Route: 065
  2. HEROIN [Suspect]
     Active Substance: DIACETYLMORPHINE
     Route: 065
  3. LIDOCAINE HCL [Suspect]
     Active Substance: LIDOCAINE HYDROCHLORIDE
     Route: 065
  4. CODEINE [Suspect]
     Active Substance: CODEINE
     Route: 065
  5. DEXTROMETHORPHAN HBR [Suspect]
     Active Substance: DEXTROMETHORPHAN HYDROBROMIDE
     Route: 065

REACTIONS (1)
  - Drug abuse [Fatal]

NARRATIVE: CASE EVENT DATE: 2013
